FAERS Safety Report 4430976-8 (Version None)
Quarter: 2004Q3

REPORT INFORMATION
  Report Type: 
  Country: None (occurrence: None)
  Receive Date: 20040824
  Receipt Date: 20040817
  Transmission Date: 20050211
  Serious: Yes (Hospitalization)
  Sender: FDA-Public Use
  Company Number: GB-JNJFOC-20040805164

PATIENT
  Sex: Male

DRUGS (10)
  1. REMICADE [Suspect]
     Indication: RHEUMATOID ARTHRITIS
     Route: 042
  2. INDOMETHACIN 25MG CAP [Concomitant]
  3. LANSOPRAZOLE [Concomitant]
  4. TRAMADOL HCL [Concomitant]
  5. CALCICHEW [Concomitant]
  6. LISINOPRIL [Concomitant]
  7. SIMVASTATIN [Concomitant]
  8. ASPIRIN [Concomitant]
  9. BENDROFLUAZIDE [Concomitant]
  10. METHOTREXATE [Concomitant]

REACTIONS (3)
  - LOCALISED INFECTION [None]
  - OSTEOMYELITIS [None]
  - TOE AMPUTATION [None]
